FAERS Safety Report 12625628 (Version 1)
Quarter: 2016Q3

REPORT INFORMATION
  Report Type: Spontaneous
  Country: CA (occurrence: CA)
  Receive Date: 20160805
  Receipt Date: 20160805
  Transmission Date: 20161109
  Serious: Yes (Hospitalization, Disabling, Other)
  Sender: FDA-Public Use
  Company Number: CA-SA-2016SA139980

PATIENT
  Age: 65 Year
  Sex: Female

DRUGS (17)
  1. ACETAMINOPHEN. [Concomitant]
     Active Substance: ACETAMINOPHEN
  2. PROPOFOL. [Concomitant]
     Active Substance: PROPOFOL
  3. METRONIDAZOLE. [Suspect]
     Active Substance: METRONIDAZOLE
     Indication: ANTIBIOTIC PROPHYLAXIS
     Route: 065
  4. SUPRANE [Concomitant]
     Active Substance: DESFLURANE
     Dosage: FORM: LIQUID INHALATION
  5. CALCIUM CHLORIDE. [Concomitant]
     Active Substance: CALCIUM CHLORIDE
     Route: 042
  6. LOVENOX [Concomitant]
     Active Substance: ENOXAPARIN SODIUM
     Dosage: FORM: SOLUTION SUBCUTANEOUS
  7. DESFLURANE. [Concomitant]
     Active Substance: DESFLURANE
  8. FENTANYL. [Concomitant]
     Active Substance: FENTANYL
     Dosage: FORM: PATCH
  9. CEFAZOLIN [Suspect]
     Active Substance: CEFAZOLIN
     Indication: ANTIBIOTIC PROPHYLAXIS
     Dosage: POWDER FOR SOLUTION INTRAMUSCULAR
     Route: 065
  10. HYDROMORPHONE [Concomitant]
     Active Substance: HYDROMORPHONE
  11. LACTATED RINGERS [Concomitant]
     Active Substance: CALCIUM CHLORIDE\POTASSIUM CHLORIDE\SODIUM CHLORIDE\SODIUM LACTATE
     Route: 042
  12. ENOXAPARIN [Concomitant]
     Active Substance: ENOXAPARIN
  13. CELEBREX [Concomitant]
     Active Substance: CELECOXIB
  14. NAROPIN [Concomitant]
     Active Substance: ROPIVACAINE HYDROCHLORIDE
  15. ROPIVACAINE HYDROCHLORIDE. [Concomitant]
     Active Substance: ROPIVACAINE HYDROCHLORIDE
  16. ENOXAPARIN SODIUM. [Suspect]
     Active Substance: ENOXAPARIN SODIUM
     Route: 065
  17. FENTANYL CITRATE. [Concomitant]
     Active Substance: FENTANYL CITRATE
     Dosage: FORM: SOLUTION EPIDURAL

REACTIONS (11)
  - International normalised ratio increased [Unknown]
  - Motor dysfunction [Unknown]
  - Haematoma [Unknown]
  - Coagulopathy [Unknown]
  - Blood albumin decreased [Unknown]
  - Vitamin K deficiency [Unknown]
  - Dysbacteriosis [Recovered/Resolved]
  - Back pain [Unknown]
  - Sensory disturbance [Unknown]
  - Paraplegia [Recovered/Resolved]
  - Spinal epidural haematoma [Unknown]
